FAERS Safety Report 18244519 (Version 1)
Quarter: 2020Q3

REPORT INFORMATION
  Report Type: Report from Study
  Country: None (occurrence: US)
  Receive Date: 20200909
  Receipt Date: 20200909
  Transmission Date: 20201103
  Serious: Yes (Other)
  Sender: FDA-Public Use
  Company Number: US-ABBVIE-20K-163-3555783-00

PATIENT
  Sex: Male

DRUGS (1)
  1. HUMIRA [Suspect]
     Active Substance: ADALIMUMAB
     Indication: PRODUCT USED FOR UNKNOWN INDICATION
     Route: 058

REACTIONS (10)
  - Dyspnoea [Unknown]
  - Constipation [Unknown]
  - Rheumatoid arthritis [Unknown]
  - Musculoskeletal stiffness [Unknown]
  - Hepatic cirrhosis [Unknown]
  - Therapeutic product effect decreased [Unknown]
  - Malaise [Unknown]
  - Neck surgery [Unknown]
  - Thrombocytopenia [Unknown]
  - Cough [Unknown]
